FAERS Safety Report 8166189-6 (Version None)
Quarter: 2012Q1

REPORT INFORMATION
  Report Type: 
  Country: None (occurrence: None)
  Receive Date: 20120227
  Receipt Date: 20110512
  Transmission Date: 20120608
  Serious: No
  Sender: FDA-Public Use
  Company Number: US-MYLANLABS-2011S1008609

PATIENT
  Age: 14 Year
  Sex: Female
  Weight: 54.43 kg

DRUGS (2)
  1. AMNESTEEM [Suspect]
     Indication: ACNE
     Route: 048
  2. ORTHO TRI-CYCLEN [Concomitant]

REACTIONS (7)
  - LIP DRY [None]
  - DRY SKIN [None]
  - ARTHRALGIA [None]
  - MYALGIA [None]
  - LIP SWELLING [None]
  - MUSCULAR WEAKNESS [None]
  - ALOPECIA [None]
